FAERS Safety Report 17060455 (Version 2)
Quarter: 2021Q1

REPORT INFORMATION
  Report Type: Spontaneous
  Country: JP (occurrence: JP)
  Receive Date: 20191121
  Receipt Date: 20210115
  Transmission Date: 20210419
  Serious: Yes (Death)
  Sender: FDA-Public Use
  Company Number: NVSJ2019JP003541

PATIENT
  Sex: Female

DRUGS (3)
  1. AFINITOR [Suspect]
     Active Substance: EVEROLIMUS
     Indication: NEUROENDOCRINE TUMOUR
     Dosage: 10 MG,UNK
     Route: 048
     Dates: start: 20181130
  2. AFINITOR [Suspect]
     Active Substance: EVEROLIMUS
     Dosage: 5.0 MG,UNK
     Route: 048
     Dates: start: 20181220
  3. STREPTOZOCIN [Concomitant]
     Active Substance: STREPTOZOCIN
     Indication: NEUROENDOCRINE TUMOUR
     Dosage: UNK
     Route: 065

REACTIONS (3)
  - Pancreatic neuroendocrine tumour [Fatal]
  - Gallbladder neoplasm [Fatal]
  - Malignant neoplasm progression [Fatal]

NARRATIVE: CASE EVENT DATE: 20190219
